FAERS Safety Report 4507725-8 (Version None)
Quarter: 2004Q4

REPORT INFORMATION
  Report Type: 
  Country: None (occurrence: None)
  Receive Date: 20040928
  Receipt Date: 20040714
  Transmission Date: 20050328
  Serious: Yes (Hospitalization)
  Sender: FDA-Public Use
  Company Number: 04P-163-0266962-00

PATIENT
  Age: 70 Year
  Sex: Female
  Weight: 57.1532 kg

DRUGS (3)
  1. HUMIRA [Suspect]
     Indication: RHEUMATOID ARTHRITIS
     Dosage: 40 MG 1 IN 2 WK, SUBCUTANEOUS : 40 MG, 1 IN 1 WK, SUBCUTANEOUS
     Route: 058
     Dates: start: 20040101, end: 20040601
  2. HUMIRA [Suspect]
     Indication: RHEUMATOID ARTHRITIS
     Dosage: 40 MG 1 IN 2 WK, SUBCUTANEOUS : 40 MG, 1 IN 1 WK, SUBCUTANEOUS
     Route: 058
     Dates: start: 20040601
  3. PREDNISONE [Concomitant]

REACTIONS (7)
  - DEHYDRATION [None]
  - DYSURIA [None]
  - FATIGUE [None]
  - KIDNEY INFECTION [None]
  - RHEUMATOID ARTHRITIS [None]
  - SOMNOLENCE [None]
  - WEIGHT DECREASED [None]
